FAERS Safety Report 17495611 (Version 1)
Quarter: 2020Q1

REPORT INFORMATION
  Report Type: Spontaneous
  Country: US (occurrence: US)
  Receive Date: 20200304
  Receipt Date: 20200304
  Transmission Date: 20200409
  Serious: No
  Sender: FDA-Public Use
  Company Number: US-PFIZER INC-2020091822

PATIENT
  Age: 59 Year
  Sex: Female
  Weight: 116 kg

DRUGS (8)
  1. BUSPIRONE [Concomitant]
     Active Substance: BUSPIRONE HYDROCHLORIDE
     Indication: ANXIETY
     Dosage: 20 MG, UNK [2-3 TIMES A DAY WITH THE METHYLPHENIDATE]
  2. BUSPIRONE [Concomitant]
     Active Substance: BUSPIRONE HYDROCHLORIDE
     Indication: CRANIOCEREBRAL INJURY
  3. PREGABALIN. [Suspect]
     Active Substance: PREGABALIN
     Indication: NECK PAIN
  4. METHYLPHENIDATE. [Concomitant]
     Active Substance: METHYLPHENIDATE
     Indication: DISTURBANCE IN ATTENTION
  5. PREGABALIN. [Suspect]
     Active Substance: PREGABALIN
     Indication: PAIN
  6. TRAZODONE [Concomitant]
     Active Substance: TRAZODONE HYDROCHLORIDE
     Indication: SLEEP DISORDER
     Dosage: 300 MG, 1X/DAY [100MG 3 AT BEDTIME]
  7. PREGABALIN. [Suspect]
     Active Substance: PREGABALIN
     Indication: CRANIOCEREBRAL INJURY
     Dosage: 150 MG, 2X/DAY [150 MG IN MORNING AND AT BEDTIME]
     Dates: start: 202002
  8. METHYLPHENIDATE. [Concomitant]
     Active Substance: METHYLPHENIDATE
     Indication: CRANIOCEREBRAL INJURY
     Dosage: 10 MG, UNK [2-3 TIMES A DAY]

REACTIONS (2)
  - Drug ineffective for unapproved indication [Unknown]
  - Drug ineffective [Unknown]

NARRATIVE: CASE EVENT DATE: 202002
